FAERS Safety Report 10488148 (Version 2)
Quarter: 2014Q4

REPORT INFORMATION
  Report Type: Spontaneous
  Country: GB (occurrence: GB)
  Receive Date: 20141002
  Receipt Date: 20141003
  Transmission Date: 20150528
  Serious: Yes (Disabling)
  Sender: FDA-Public Use
  Company Number: GB-009507513-1409ISR014633

PATIENT

DRUGS (1)
  1. AERIUS [Suspect]
     Active Substance: DESLORATADINE
     Route: 048

REACTIONS (2)
  - Somnolence [Unknown]
  - Impaired work ability [Unknown]
